FAERS Safety Report 8509183 (Version 3)
Quarter: 2012Q4

REPORT INFORMATION
  Report Type: 
  Country: US (occurrence: US)
  Receive Date: 20120412
  Receipt Date: 20121022
  Transmission Date: 20130627
  Serious: Yes (Other)
  Sender: FDA-Public Use
  Company Number: US-ASTRAZENECA-2012SE01269

PATIENT
  Age: 77 Year
  Sex: Female

DRUGS (1)
  1. NEXIUM [Suspect]
     Route: 048

REACTIONS (10)
  - Bladder spasm [Unknown]
  - Gastrooesophageal reflux disease [Unknown]
  - Faecal incontinence [Unknown]
  - Bladder disorder [Unknown]
  - Crying [Unknown]
  - Depression [Unknown]
  - Malaise [Unknown]
  - Incorrect dose administered [Unknown]
  - Drug prescribing error [Unknown]
  - Drug dose omission [Unknown]
